FAERS Safety Report 4655290-7 (Version None)
Quarter: 2005Q2

REPORT INFORMATION
  Report Type: 
  Country: None (occurrence: None)
  Receive Date: 20050505
  Receipt Date: 20050419
  Transmission Date: 20051028
  Serious: Yes (Other)
  Sender: FDA-Public Use
  Company Number: 2005BI004230

PATIENT
  Age: 45 Year
  Sex: Female

DRUGS (13)
  1. AVONEX [Suspect]
     Indication: MULTIPLE SCLEROSIS
     Dosage: IM
     Route: 030
     Dates: start: 20011201, end: 20030101
  2. NATALIZUMAB [Suspect]
     Indication: MULTIPLE SCLEROSIS
     Dosage: 300 MG; QM; IV
     Route: 042
     Dates: start: 20050101
  3. PROVIGIL [Concomitant]
  4. NAMENDA [Concomitant]
  5. ATIVAN [Concomitant]
  6. EFFEXOR [Concomitant]
  7. TRILEPTAL [Concomitant]
  8. TOPAMAX [Concomitant]
  9. DETROL LA [Concomitant]
  10. AVINZA [Concomitant]
  11. MIRALAX [Concomitant]
  12. REBIF [Concomitant]
  13. NOVANTRONE [Concomitant]

REACTIONS (3)
  - GRAND MAL CONVULSION [None]
  - LOSS OF CONSCIOUSNESS [None]
  - MULTIPLE SCLEROSIS [None]
